FAERS Safety Report 10382185 (Version 3)
Quarter: 2015Q1

REPORT INFORMATION
  Report Type: Other
  Country: US (occurrence: US)
  Receive Date: 20140813
  Receipt Date: 20150305
  Transmission Date: 20150720
  Serious: Yes (Hospitalization, Other)
  Sender: FDA-Public Use
  Company Number: US-ACORDA-ACO_105391_2014

PATIENT
  Age: 65 Year
  Sex: Female

DRUGS (11)
  1. ADVAIR HFA [Concomitant]
     Active Substance: FLUTICASONE PROPIONATE\SALMETEROL XINAFOATE
     Indication: PRODUCT USED FOR UNKNOWN INDICATION
     Dosage: 250/50 MCG
  2. AMPYRA [Suspect]
     Active Substance: DALFAMPRIDINE
     Indication: MULTIPLE SCLEROSIS
     Dosage: 10 MG, Q 12 HRS
     Route: 065
     Dates: start: 201405, end: 20140801
  3. BACLOFEN. [Concomitant]
     Active Substance: BACLOFEN
     Indication: PRODUCT USED FOR UNKNOWN INDICATION
     Dosage: 10 MG, UNK
  4. GLUCOSAMINE [Concomitant]
     Active Substance: GLUCOSAMINE
     Indication: PRODUCT USED FOR UNKNOWN INDICATION
     Dosage: 500 MG, UNK
  5. CHOLESTYRAMINE. [Concomitant]
     Active Substance: CHOLESTYRAMINE
     Indication: PRODUCT USED FOR UNKNOWN INDICATION
     Dosage: 4 GR/9 GR BID
     Route: 048
  6. OXYBUTYNIN CHLORIDE. [Concomitant]
     Active Substance: OXYBUTYNIN CHLORIDE
     Indication: PRODUCT USED FOR UNKNOWN INDICATION
     Dosage: 10 MG, UNK
     Route: 048
  7. DESMOPRESSIN [Concomitant]
     Active Substance: DESMOPRESSIN
     Indication: PRODUCT USED FOR UNKNOWN INDICATION
     Dosage: 0.2 , QD
     Route: 048
  8. VITAMIN C [Concomitant]
     Active Substance: ASCORBIC ACID
     Indication: PRODUCT USED FOR UNKNOWN INDICATION
     Dosage: 250 MG, UNK
  9. VITAMIN B12 [Concomitant]
     Active Substance: CYANOCOBALAMIN
     Indication: PRODUCT USED FOR UNKNOWN INDICATION
     Dosage: 100 ?G, UNK
  10. AMITRIPTYLINE HCL [Concomitant]
     Active Substance: AMITRIPTYLINE
     Dosage: 10MG DAILY
  11. LISINOPRIL. [Concomitant]
     Active Substance: LISINOPRIL
     Indication: PRODUCT USED FOR UNKNOWN INDICATION
     Dosage: 5 MG, UNK

REACTIONS (1)
  - Acute myocardial infarction [Recovered/Resolved]

NARRATIVE: CASE EVENT DATE: 20140719
